FAERS Safety Report 5973525-5 (Version None)
Quarter: 2008Q4

REPORT INFORMATION
  Report Type: 
  Country: None (occurrence: None)
  Receive Date: 20081201
  Receipt Date: 20081117
  Transmission Date: 20090506
  Serious: Yes (Other)
  Sender: FDA-Public Use
  Company Number: US-AVENTIS-200718348US

PATIENT
  Sex: Female

DRUGS (24)
  1. KETEK [Suspect]
     Route: 048
     Dates: start: 20060428, end: 20060506
  2. KETEK [Suspect]
     Dosage: DOSE: UNK
     Dates: start: 20050612, end: 20050601
  3. KETEK [Suspect]
     Indication: BRONCHITIS
     Route: 048
     Dates: start: 20060428, end: 20060506
  4. KETEK [Suspect]
     Dosage: DOSE: UNK
     Dates: start: 20050612, end: 20050601
  5. KETEK [Suspect]
     Indication: HAND-FOOT-AND-MOUTH DISEASE
     Route: 048
     Dates: start: 20060428, end: 20060506
  6. KETEK [Suspect]
     Dosage: DOSE: UNK
     Dates: start: 20050612, end: 20050601
  7. NEXIUM [Concomitant]
     Dosage: DOSE: UNK
  8. PARLODEL [Concomitant]
     Dosage: DOSE: UNK
     Dates: end: 20060101
  9. CARAFATE [Concomitant]
     Dosage: DOSE: UNK
  10. CELEBREX [Concomitant]
     Dosage: DOSE: UNK
  11. AMITRIPTYLINE HCL [Concomitant]
     Dosage: DOSE: UNK
  12. SOMA [Concomitant]
     Dosage: DOSE: UNK
  13. NASACORT [Concomitant]
     Dosage: DOSE: UNK
  14. LIPITOR [Concomitant]
     Dosage: DOSE: UNK
  15. REGLAN [Concomitant]
     Dosage: DOSE: UNK
  16. ALLEGRA [Concomitant]
     Dosage: DOSE: UNK
  17. SENNA [Concomitant]
     Dosage: DOSE: UNK
  18. ASCORBIC ACID [Concomitant]
     Dosage: DOSE: UNK
  19. CALCIUM WITH VITAMIN D             /01233101/ [Concomitant]
     Dosage: DOSE: UNK
  20. MULTI-VITAMINS [Concomitant]
     Dosage: DOSE: UNK
  21. VITAMIN B-12 [Concomitant]
     Dosage: DOSE: UNK
  22. VITAMIN E [Concomitant]
     Dosage: DOSE: UNK
  23. SINGULAIR [Concomitant]
     Dosage: DOSE: UNK
  24. LEXAPRO [Concomitant]
     Dosage: DOSE: UNK

REACTIONS (3)
  - ORAL MUCOSAL ERUPTION [None]
  - STEVENS-JOHNSON SYNDROME [None]
  - STOMATITIS [None]
